FAERS Safety Report 25457766 (Version 2)
Quarter: 2025Q3

REPORT INFORMATION
  Report Type: Report from Study
  Country: US (occurrence: US)
  Receive Date: 20250619
  Receipt Date: 20250728
  Transmission Date: 20251021
  Serious: Yes (Hospitalization, Other)
  Sender: MALLINCKRODT
  Company Number: US-MALLINCKRODT-MNK202503542

PATIENT
  Age: 66 Year
  Sex: Male

DRUGS (2)
  1. CORTICOTROPIN [Suspect]
     Active Substance: CORTICOTROPIN
     Indication: Nephrotic syndrome
  2. CORTICOTROPIN [Suspect]
     Active Substance: CORTICOTROPIN
     Indication: Nephrotic syndrome

REACTIONS (7)
  - Dyspnoea [Recovered/Resolved]
  - Pulmonary oedema [Recovered/Resolved]
  - Prostatitis [Not Recovered/Not Resolved]
  - Urinary retention [Unknown]
  - General physical health deterioration [Not Recovered/Not Resolved]
  - Sepsis [Unknown]
  - Asthenia [Unknown]

NARRATIVE: CASE EVENT DATE: 20250301
